FAERS Safety Report 5526741-0 (Version None)
Quarter: 2007Q4

REPORT INFORMATION
  Report Type: 
  Country: None (occurrence: None)
  Receive Date: 20071127
  Receipt Date: 20071114
  Transmission Date: 20080405
  Serious: Yes (Other)
  Sender: FDA-Public Use
  Company Number: IT-GENENTECH-251337

PATIENT
  Sex: Male
  Weight: 75 kg

DRUGS (2)
  1. RANIBIZUMAB [Suspect]
     Indication: MACULAR DEGENERATION
     Dosage: UNK, UNK
     Dates: start: 20070727
  2. VERTEPORFIN OR COMPARATOR [Suspect]
     Indication: MACULAR DEGENERATION
     Dosage: UNK, UNK
     Dates: start: 20070727

REACTIONS (2)
  - CEREBRAL ISCHAEMIA [None]
  - VISION BLURRED [None]
